FAERS Safety Report 18342721 (Version 1)
Quarter: 2020Q4

REPORT INFORMATION
  Report Type: Report from Study
  Country: None (occurrence: US)
  Receive Date: 20201005
  Receipt Date: 20201005
  Transmission Date: 20210113
  Serious: Yes (Hospitalization)
  Sender: FDA-Public Use
  Company Number: US-ABBVIE-20K-163-3588245-00

PATIENT
  Sex: Male

DRUGS (1)
  1. HUMIRA [Suspect]
     Active Substance: ADALIMUMAB
     Indication: HIDRADENITIS
     Dosage: CITRATE FREE
     Route: 058

REACTIONS (7)
  - Infection [Recovering/Resolving]
  - Pyrexia [Recovering/Resolving]
  - Liver disorder [Unknown]
  - Injection site infection [Recovering/Resolving]
  - COVID-19 [Recovering/Resolving]
  - Migraine [Recovering/Resolving]
  - Sepsis [Recovering/Resolving]

NARRATIVE: CASE EVENT DATE: 2020
